FAERS Safety Report 13428810 (Version 2)
Quarter: 2017Q2

REPORT INFORMATION
  Report Type: Spontaneous
  Country: US (occurrence: US)
  Receive Date: 20170411
  Receipt Date: 20170419
  Transmission Date: 20170830
  Serious: Yes (Hospitalization)
  Sender: FDA-Public Use
  Company Number: US-UNITED THERAPEUTICS-UNT-2017-005071

PATIENT
  Sex: Female

DRUGS (1)
  1. REMODULIN [Suspect]
     Active Substance: TREPROSTINIL
     Indication: PULMONARY ARTERIAL HYPERTENSION
     Dosage: 0.017 ?G/KG, CONTINUING
     Route: 058
     Dates: start: 20170328

REACTIONS (9)
  - Loss of consciousness [Unknown]
  - Lethargy [Not Recovered/Not Resolved]
  - Hypotension [Not Recovered/Not Resolved]
  - Back injury [Unknown]
  - Head injury [Unknown]
  - Urine output decreased [Unknown]
  - Blood pressure increased [Recovered/Resolved]
  - Blood potassium decreased [Unknown]
  - Joint injury [Unknown]

NARRATIVE: CASE EVENT DATE: 20170404
